FAERS Safety Report 6456872-2 (Version None)
Quarter: 2009Q4

REPORT INFORMATION
  Report Type: 
  Country: None (occurrence: None)
  Receive Date: 20091124
  Receipt Date: 20091124
  Transmission Date: 20100525
  Serious: Yes (Hospitalization)
  Sender: FDA-Public Use
  Company Number: None

PATIENT
  Age: 63 Year
  Sex: Male
  Weight: 83.4 kg

DRUGS (8)
  1. BEVACIZUMAB/DOCETAXEL 10MG/KG AND 30 MG/M2 [Suspect]
     Indication: OESOPHAGEAL CANCER METASTATIC
     Dosage: 10MG/KG AND 30 MG/M2 DAY1 AND DAYS1+8 IV BOLUS
     Route: 040
     Dates: start: 20091028, end: 20091104
  2. CISPLATIN/IRINOTECAN [Suspect]
     Indication: OESOPHAGEAL CANCER METASTATIC
     Dosage: 25MG/M2 AND 50MG/M2 DAYS 1 AND 8 IV BOLUS
     Route: 040
     Dates: start: 20091028, end: 20091104
  3. PREVACID [Concomitant]
  4. LIPITOR [Concomitant]
  5. METOPROLOL [Concomitant]
  6. COMPAZINE [Concomitant]
  7. ZOFRAN [Concomitant]
  8. LORAZEPAM [Concomitant]

REACTIONS (3)
  - DEHYDRATION [None]
  - DIARRHOEA [None]
  - VOMITING [None]
